FAERS Safety Report 6819560-6 (Version None)
Quarter: 2010Q3

REPORT INFORMATION
  Report Type: 
  Country: None (occurrence: None)
  Receive Date: 20100707
  Receipt Date: 20100625
  Transmission Date: 20110219
  Serious: Yes (Other)
  Sender: FDA-Public Use
  Company Number: SE-SANOFI-AVENTIS-2010SA036894

PATIENT

DRUGS (2)
  1. OXALIPLATIN [Suspect]
     Route: 041
  2. CAPECITABINE [Suspect]
     Route: 048

REACTIONS (12)
  - ANAEMIA [None]
  - DECREASED APPETITE [None]
  - DEEP VEIN THROMBOSIS [None]
  - DEHYDRATION [None]
  - DIARRHOEA [None]
  - FATIGUE [None]
  - INFECTION [None]
  - NAUSEA [None]
  - PERIPHERAL SENSORY NEUROPATHY [None]
  - PYREXIA [None]
  - STENT MALFUNCTION [None]
  - VOMITING [None]
